FAERS Safety Report 6466331-9 (Version None)
Quarter: 2009Q4

REPORT INFORMATION
  Report Type: 
  Country: None (occurrence: None)
  Receive Date: 20091202
  Receipt Date: 20091124
  Transmission Date: 20100525
  Serious: Yes (Other)
  Sender: FDA-Public Use
  Company Number: FI-ROCHE-671129

PATIENT
  Age: 8 Year
  Sex: Male

DRUGS (1)
  1. TAMIFLU [Suspect]
     Route: 048

REACTIONS (3)
  - DRUG INEFFECTIVE [None]
  - MEMORY IMPAIRMENT [None]
  - VIRAL INFECTION [None]
